FAERS Safety Report 24248120 (Version 1)
Quarter: 2024Q3

REPORT INFORMATION
  Report Type: Spontaneous
  Country: NL (occurrence: NL)
  Receive Date: 20240826
  Receipt Date: 20240826
  Transmission Date: 20241016
  Serious: Yes (Hospitalization)
  Sender: NOVARTIS
  Company Number: None

PATIENT
  Age: 76 Year
  Sex: Male
  Weight: 72 kg

DRUGS (10)
  1. COSENTYX [Suspect]
     Active Substance: SECUKINUMAB
     Indication: Psoriasis
     Dosage: 300 MG, Q4W (300MG (=2ML) ELKE 4 WEKEN)
     Route: 065
     Dates: start: 20230918, end: 20240728
  2. FOSRENOL [Concomitant]
     Active Substance: LANTHANUM CARBONATE
     Indication: Product used for unknown indication
     Dosage: 750 MG, QD (KAUWTABLET, 750 MG (MILLIGRAM), 1DD1)
     Route: 065
  3. INSULIN ASPART [Concomitant]
     Active Substance: INSULIN ASPART
     Indication: Product used for unknown indication
     Dosage: UNK (SUSPENSIE VOOR INJECTIE, 30/70 EENHEDEN/ML (EENHEDEN PER MILLILITER), 20 IE 2DD) (~INSULINE ASP
     Route: 065
  4. BUMETANIDE [Concomitant]
     Active Substance: BUMETANIDE
     Indication: Product used for unknown indication
     Dosage: 5 MG, BID
     Route: 065
  5. CARBASPIRIN CALCIUM [Concomitant]
     Active Substance: CARBASPIRIN CALCIUM
     Indication: Product used for unknown indication
     Dosage: 100 MG, QD (SACHET (POWDER), 100 MG (MILLIGRAMS), 1DD1) (CARBASALATE CALCIUM POWDER 100MG / ASCAL CA
     Route: 065
  6. SODIUM BICARBONATE [Concomitant]
     Active Substance: SODIUM BICARBONATE
     Indication: Product used for unknown indication
     Dosage: 500 MG, TID
     Route: 065
  7. PANTOPRAZOLE SODIUM [Concomitant]
     Active Substance: PANTOPRAZOLE SODIUM
     Indication: Product used for unknown indication
     Dosage: 40 MG, QD (MAAGSAPRESISTENTE TABLET, 40 MG (MILLIGRAM), 1DD1)
     Route: 065
  8. CALCIUM CARBONATE [Concomitant]
     Active Substance: CALCIUM CARBONATE
     Indication: Product used for unknown indication
     Dosage: UNK (KAUWTABLET, 1,25 G (GRAM)/400 EENHEDEN, 1DD1)
     Route: 065
  9. IVABRADINE [Concomitant]
     Active Substance: IVABRADINE
     Indication: Product used for unknown indication
     Dosage: 5 MG, BID (NAAM GENEESMIDDEL OF VACCIN: CORLENTOR (IVABRADINE) TOEDIENINGSVORM EN STERKTE: TABLET, 5
     Route: 065
  10. CALCIUM ACETATE [Concomitant]
     Active Substance: CALCIUM ACETATE
     Indication: Product used for unknown indication
     Dosage: UNK (435/235 MG (MILLIGRAM), 1DD1)
     Route: 065

REACTIONS (1)
  - Pemphigoid [Recovering/Resolving]
